FAERS Safety Report 4579085-8 (Version None)
Quarter: 2005Q1

REPORT INFORMATION
  Report Type: 
  Country: None (occurrence: None)
  Receive Date: 20050127
  Receipt Date: 20040903
  Transmission Date: 20050727
  Serious: No
  Sender: FDA-Public Use
  Company Number: USA040977466

PATIENT
  Age: 29 Year
  Sex: Female

DRUGS (5)
  1. STRATTERA [Suspect]
     Indication: ATTENTION DEFICIT/HYPERACTIVITY DISORDER
     Dosage: 40 MG DAY
     Dates: start: 20040825
  2. MACROBID (NITROFURNATOIN) [Concomitant]
  3. DIFLUCAN [Concomitant]
  4. KLONOPIN [Concomitant]
  5. ZANTAC [Concomitant]

REACTIONS (5)
  - ABNORMAL DREAMS [None]
  - HYPERHIDROSIS [None]
  - INFECTION [None]
  - NAUSEA [None]
  - URINARY TRACT INFECTION FUNGAL [None]
